FAERS Safety Report 8781079 (Version 5)
Quarter: 2012Q4

REPORT INFORMATION
  Report Type: 
  Country: VE (occurrence: VE)
  Receive Date: 20120913
  Receipt Date: 20121213
  Transmission Date: 20130627
  Serious: Yes (Death, Hospitalization)
  Sender: FDA-Public Use
  Company Number: PHHO2011VE17401

PATIENT
  Age: 48 Year
  Sex: Female
  Weight: 60 kg

DRUGS (10)
  1. AFINITOR [Suspect]
     Indication: BREAST CANCER METASTATIC
     Dosage: UNK
     Route: 048
     Dates: start: 20110822
  2. COMPARATOR PACLITAXEL [Suspect]
     Indication: BREAST CANCER METASTATIC
     Dosage: 128 mg, QW
     Route: 042
     Dates: start: 20110822, end: 20111003
  3. COMPARATOR TRASTUZUMAB [Suspect]
     Indication: BREAST CANCER METASTATIC
     Dosage: 120 mg, QW
     Route: 042
     Dates: start: 20110922
  4. METICORTEN [Concomitant]
     Indication: METASTASES TO LUNG
     Dosage: 50 mg, QD
     Route: 048
     Dates: start: 20110809, end: 20111010
  5. LANZOPRAL [Concomitant]
     Indication: PROPHYLAXIS
     Dosage: 30 mg, QD
     Route: 048
     Dates: start: 20110729, end: 20111011
  6. BONDRONAT [Concomitant]
     Indication: METASTASES TO BONE
     Dosage: 6 mg per month
     Route: 042
     Dates: start: 20110822
  7. ATORVASTATIN [Concomitant]
     Indication: DYSLIPIDAEMIA
     Dosage: 40 mg, QD
     Route: 048
     Dates: start: 20110818, end: 20111010
  8. LOSARTAN [Concomitant]
     Indication: HYPERTENSION
     Dosage: 50 mg, QD
     Route: 048
     Dates: start: 20110920
  9. ATAMEL [Concomitant]
     Indication: HEADACHE
     Dosage: 650 mg
     Route: 048
     Dates: start: 20110818
  10. ATAMEL [Concomitant]
     Indication: PYREXIA

REACTIONS (1)
  - Pulmonary embolism [Fatal]
